FAERS Safety Report 16689948 (Version 1)
Quarter: 2019Q3

REPORT INFORMATION
  Report Type: Spontaneous
  Country: DE (occurrence: DE)
  Receive Date: 20190809
  Receipt Date: 20190809
  Transmission Date: 20191004
  Serious: Yes (Other)
  Sender: FDA-Public Use
  Company Number: DE-MYLANLABS-2019M1074279

PATIENT
  Sex: Female

DRUGS (3)
  1. CITALOPRAM [Suspect]
     Active Substance: CITALOPRAM HYDROBROMIDE
     Indication: DEPRESSION
     Dosage: IN THE LAST 6 MONTHS
     Route: 048
  2. CITALOPRAM [Suspect]
     Active Substance: CITALOPRAM HYDROBROMIDE
     Dosage: 40 MILLIGRAM, QD
     Route: 048
  3. OPIPRAMOL-NEURAXPHARM [Suspect]
     Active Substance: OPIPRAMOL
     Indication: DEPRESSION
     Dosage: 4 WEEKS AGO
     Route: 048

REACTIONS (5)
  - Oedema peripheral [Not Recovered/Not Resolved]
  - Visual impairment [Unknown]
  - Dizziness [Unknown]
  - Product use in unapproved indication [Unknown]
  - Lipoedema [Not Recovered/Not Resolved]
